FAERS Safety Report 21544636 (Version 1)
Quarter: 2022Q4

REPORT INFORMATION
  Report Type: Spontaneous
  Country: US (occurrence: None)
  Receive Date: 20221101
  Receipt Date: 20221101
  Transmission Date: 20230113
  Serious: Yes (Other)
  Sender: FDA-Public Use
  Company Number: None

PATIENT
  Age: 81 Year
  Sex: Female
  Weight: 81 kg

DRUGS (20)
  1. ALBUTEROL SULFATE\IPRATROPIUM BROMIDE [Suspect]
     Active Substance: ALBUTEROL SULFATE\IPRATROPIUM BROMIDE
     Indication: Wheezing
     Dosage: FREQUENCY : EVERY 6 HOURS;?
     Route: 055
     Dates: start: 20221031, end: 20221101
  2. LATANOPROST [Concomitant]
     Active Substance: LATANOPROST
  3. BERBERINE [Concomitant]
     Active Substance: BERBERINE
  4. hawthorne berry [Concomitant]
  5. VALERIAN [Concomitant]
     Active Substance: VALERIAN
  6. HOPS [Concomitant]
     Active Substance: HOPS
  7. DIETARY SUPPLEMENT [Concomitant]
     Active Substance: DIETARY SUPPLEMENT
  8. L-acetylcarnitine [Concomitant]
  9. VITAMIN D3 [Concomitant]
     Active Substance: CHOLECALCIFEROL
  10. MAGNESIUM GLYCINATE [Concomitant]
     Active Substance: MAGNESIUM GLYCINATE
  11. quercetin dehydrate [Concomitant]
  12. 5-HTP [Concomitant]
  13. GABA [Concomitant]
     Active Substance: HOMEOPATHICS
  14. DIETARY SUPPLEMENT\HERBALS\MILK THISTLE [Concomitant]
     Active Substance: DIETARY SUPPLEMENT\HERBALS\MILK THISTLE
  15. ACETYLCYSTEINE [Concomitant]
     Active Substance: ACETYLCYSTEINE
  16. NIACIN [Concomitant]
     Active Substance: NIACIN
  17. Gynostemma pentaphyllium [Concomitant]
  18. Diurex [Concomitant]
  19. ACETAMINOPHEN [Concomitant]
     Active Substance: ACETAMINOPHEN
  20. genereic antihistamine [Concomitant]

REACTIONS (3)
  - Asthenia [None]
  - Tremor [None]
  - Heart rate increased [None]

NARRATIVE: CASE EVENT DATE: 20221031
